FAERS Safety Report 14816708 (Version 1)
Quarter: 2018Q2

REPORT INFORMATION
  Report Type: Report from Study
  Country: MX (occurrence: MX)
  Receive Date: 20180426
  Receipt Date: 20180426
  Transmission Date: 20180711
  Serious: Yes (Death, Other)
  Sender: FDA-Public Use
  Company Number: MX-CELGENEUS-MEX-20180402033

PATIENT
  Age: 73 Year
  Sex: Female

DRUGS (4)
  1. VIDAZA [Suspect]
     Active Substance: AZACITIDINE
     Dosage: 70 MILLIGRAM
     Route: 058
     Dates: start: 20180124, end: 20180130
  2. VIDAZA [Suspect]
     Active Substance: AZACITIDINE
     Dosage: 140 MILLIGRAM
     Route: 058
     Dates: start: 20171219, end: 20171225
  3. VIDAZA [Suspect]
     Active Substance: AZACITIDINE
     Indication: ACUTE MYELOID LEUKAEMIA
     Dosage: 140 MILLIGRAM
     Route: 058
     Dates: start: 20171113, end: 20171119
  4. VIDAZA [Suspect]
     Active Substance: AZACITIDINE
     Dosage: 70 MILLIGRAM
     Route: 058
     Dates: start: 20180209, end: 20180215

REACTIONS (2)
  - Death [Fatal]
  - Platelet count decreased [Unknown]

NARRATIVE: CASE EVENT DATE: 201803
